FAERS Safety Report 24397046 (Version 1)
Quarter: 2024Q4

REPORT INFORMATION
  Report Type: Spontaneous
  Country: GB (occurrence: SE)
  Receive Date: 20241004
  Receipt Date: 20241004
  Transmission Date: 20250115
  Serious: Yes (Life-Threatening, Hospitalization, Other)
  Sender: SUNOVION
  Company Number: SE-CNX THERAPEUTICS-2024CNX000596

PATIENT

DRUGS (1)
  1. LATUDA [Suspect]
     Active Substance: LURASIDONE HYDROCHLORIDE
     Indication: Bipolar disorder
     Dosage: 18.5 MG, QD
     Route: 048
     Dates: start: 20240703, end: 20240903

REACTIONS (3)
  - Suicidal ideation [Recovering/Resolving]
  - Bipolar disorder [Recovering/Resolving]
  - Off label use [Unknown]

NARRATIVE: CASE EVENT DATE: 20240820
